FAERS Safety Report 5610335-2 (Version None)
Quarter: 2008Q1

REPORT INFORMATION
  Report Type: 
  Country: None (occurrence: None)
  Receive Date: 20080128
  Receipt Date: 20061006
  Transmission Date: 20080703
  Serious: Yes (Death)
  Sender: FDA-Public Use
  Company Number: NL01PV06.00234

PATIENT
  Age: 60 Year
  Sex: Male

DRUGS (2)
  1. PAROXETINE [Suspect]
     Indication: ANXIETY
     Dosage: 20 MG,
     Dates: start: 19980101
  2. FLUOXETINE [Suspect]
     Indication: DEPRESSION
     Dates: start: 19900101

REACTIONS (5)
  - AGITATION [None]
  - COMPLETED SUICIDE [None]
  - HALLUCINATION [None]
  - HOMICIDE [None]
  - RESTLESSNESS [None]
